FAERS Safety Report 13946513 (Version 13)
Quarter: 2020Q3

REPORT INFORMATION
  Report Type: Spontaneous
  Country: US (occurrence: US)
  Receive Date: 20170907
  Receipt Date: 20200724
  Transmission Date: 20201102
  Serious: Yes (Hospitalization)
  Sender: FDA-Public Use
  Company Number: US-ACTELION-A-US2017-153449

PATIENT
  Age: 57 Year
  Sex: Female
  Weight: 81.18 kg

DRUGS (24)
  1. UPTRAVI [Suspect]
     Active Substance: SELEXIPAG
     Indication: PULMONARY ARTERIAL HYPERTENSION
     Dosage: 600 MCG, BID
     Route: 048
  2. FISH OIL [Concomitant]
     Active Substance: FISH OIL
  3. COLACE [Concomitant]
     Active Substance: DOCUSATE SODIUM
  4. XOPENEX [Concomitant]
     Active Substance: LEVALBUTEROL HYDROCHLORIDE
     Dosage: UNK
     Dates: start: 20160904
  5. BUMEX [Concomitant]
     Active Substance: BUMETANIDE
  6. ALBUTEROL. [Concomitant]
     Active Substance: ALBUTEROL
  7. CLARITIN ALLERGIC [Concomitant]
     Active Substance: OXYMETAZOLINE HYDROCHLORIDE
     Dosage: UNK
     Dates: start: 20180205
  8. ADCIRCA [Concomitant]
     Active Substance: TADALAFIL
     Dosage: UNK MG, QD
     Dates: start: 20170606
  9. LOSARTAN. [Concomitant]
     Active Substance: LOSARTAN
     Dosage: 100 MG, QD
  10. HUMALOG [Concomitant]
     Active Substance: INSULIN LISPRO
  11. BUMETANIDE. [Concomitant]
     Active Substance: BUMETANIDE
  12. CARVEDIOL [Concomitant]
     Active Substance: CARVEDILOL
     Dosage: 12.5 MG, QD
  13. OPSUMIT [Suspect]
     Active Substance: MACITENTAN
     Indication: PULMONARY ARTERIAL HYPERTENSION
     Dosage: 10 MG, QD
     Route: 048
     Dates: start: 20170316
  14. REMODULIN [Concomitant]
     Active Substance: TREPROSTINIL
     Dosage: UNK
     Dates: start: 20170801
  15. VENTOLIN [Concomitant]
     Active Substance: ALBUTEROL SULFATE
  16. SILDENAFIL. [Suspect]
     Active Substance: SILDENAFIL
     Indication: PULMONARY ARTERIAL HYPERTENSION
     Dosage: UNK, TID
     Route: 065
     Dates: start: 201612, end: 20170605
  17. POTASSIUM CHLORIDE. [Concomitant]
     Active Substance: POTASSIUM CHLORIDE
  18. LANTUS [Concomitant]
     Active Substance: INSULIN GLARGINE
  19. ATORVASTATIN [Concomitant]
     Active Substance: ATORVASTATIN
  20. PREVACID [Concomitant]
     Active Substance: LANSOPRAZOLE
     Dosage: UNK
     Dates: start: 20170826
  21. SPIRONOLACTONE. [Concomitant]
     Active Substance: SPIRONOLACTONE
     Dosage: 25 MG, QD
     Dates: start: 20170605
  22. ASPIRIN 81 [Concomitant]
     Active Substance: ASPIRIN
  23. TYLENOL [Concomitant]
     Active Substance: ACETAMINOPHEN
  24. DIURIL [CHLOROTHIAZIDE SODIUM] [Concomitant]
     Dosage: UNK
     Dates: start: 20171219

REACTIONS (23)
  - Cardiac operation [Unknown]
  - Nausea [Unknown]
  - Oedema peripheral [Recovering/Resolving]
  - Dyspnoea [Unknown]
  - Fistula repair [Unknown]
  - Therapy change [Unknown]
  - Alpha haemolytic streptococcal infection [Recovered/Resolved]
  - Feeling abnormal [Unknown]
  - Condition aggravated [Not Recovered/Not Resolved]
  - Streptococcal bacteraemia [Recovered/Resolved]
  - Complication associated with device [Recovered/Resolved]
  - Fatigue [Unknown]
  - Unevaluable event [Unknown]
  - Product dose omission issue [Unknown]
  - White blood cell count increased [Recovered/Resolved]
  - Pyrexia [Recovered/Resolved]
  - Influenza like illness [Not Recovered/Not Resolved]
  - Pulmonary arterial hypertension [Not Recovered/Not Resolved]
  - Dialysis device insertion [Recovered/Resolved]
  - Pain in jaw [Unknown]
  - Headache [Unknown]
  - Sepsis [Recovered/Resolved]
  - Pain [Unknown]

NARRATIVE: CASE EVENT DATE: 201704
